FAERS Safety Report 7963044-9 (Version None)
Quarter: 2011Q4

REPORT INFORMATION
  Report Type: 
  Country: None (occurrence: None)
  Receive Date: 20111207
  Receipt Date: 20111128
  Transmission Date: 20120403
  Serious: Yes (Hospitalization)
  Sender: FDA-Public Use
  Company Number: US-ASTRAZENECA-2011SE64372

PATIENT
  Age: 60 Year
  Sex: Female
  Weight: 56.7 kg

DRUGS (10)
  1. SYMBICORT [Suspect]
     Indication: PNEUMONIA
     Dosage: 2 PUFFS TWO TIMES A DAY
     Route: 055
     Dates: start: 20050101
  2. POENX NEBULIZER [Concomitant]
     Dosage: FOUR TIMES A DAY
  3. LISINOPRIL [Concomitant]
     Indication: BLOOD PRESSURE ABNORMAL
  4. SINGULAIR [Concomitant]
     Indication: SINUSITIS
  5. METFORMIN HCL [Concomitant]
  6. CLOTRIMAZOLE [Concomitant]
  7. IRON OTC [Concomitant]
     Indication: ANAEMIA
  8. MUCUS [Concomitant]
     Indication: MUCOSAL DRYNESS
  9. SPIRIVA [Concomitant]
  10. SYMBICORT [Suspect]
     Indication: CHRONIC OBSTRUCTIVE PULMONARY DISEASE
     Dosage: 2 PUFFS TWO TIMES A DAY
     Route: 055
     Dates: start: 20050101

REACTIONS (7)
  - PULMONARY MASS [None]
  - OFF LABEL USE [None]
  - GENERALISED ERYTHEMA [None]
  - PNEUMONIA [None]
  - DRUG DOSE OMISSION [None]
  - PRODUCT QUALITY ISSUE [None]
  - INGUINAL HERNIA [None]
